FAERS Safety Report 14811766 (Version 3)
Quarter: 2018Q4

REPORT INFORMATION
  Report Type: Report from Study
  Country: US (occurrence: US)
  Receive Date: 20180425
  Receipt Date: 20181017
  Transmission Date: 20190204
  Serious: No
  Sender: FDA-Public Use
  Company Number: US-AMGEN-USASL2018046663

PATIENT
  Sex: Female

DRUGS (1)
  1. REPATHA [Suspect]
     Active Substance: EVOLOCUMAB
     Indication: HYPERCHOLESTEROLAEMIA
     Dosage: 140 MG, Q2WK
     Route: 065
     Dates: start: 2017

REACTIONS (5)
  - Glycosylated haemoglobin increased [Unknown]
  - Vision blurred [Unknown]
  - Influenza like illness [Unknown]
  - Malaise [Unknown]
  - Injection site pain [Unknown]
